FAERS Safety Report 24221668 (Version 1)
Quarter: 2024Q3

REPORT INFORMATION
  Report Type: Spontaneous
  Country: AR (occurrence: AR)
  Receive Date: 20240819
  Receipt Date: 20240819
  Transmission Date: 20241017
  Serious: Yes (Other)
  Sender: EPIC PHARM
  Company Number: AR-EPICPHARMA-AR-2024EPCLIT00992

PATIENT
  Age: 43 Year
  Sex: Male

DRUGS (6)
  1. ROPINIROLE HYDROCHLORIDE [Suspect]
     Active Substance: ROPINIROLE HYDROCHLORIDE
     Indication: Parkinson^s disease
     Dosage: UP TO 8 MG
     Route: 065
  2. ROPINIROLE HYDROCHLORIDE [Suspect]
     Active Substance: ROPINIROLE HYDROCHLORIDE
     Dosage: UP TO 16 MG
     Route: 065
  3. CARBIDOPA\LEVODOPA [Concomitant]
     Active Substance: CARBIDOPA\LEVODOPA
     Indication: Product used for unknown indication
     Route: 065
  4. RASAGILINE [Concomitant]
     Active Substance: RASAGILINE\RASAGILINE MESYLATE
     Indication: Product used for unknown indication
     Route: 065
  5. CLONAZEPAM [Concomitant]
     Active Substance: CLONAZEPAM
     Route: 048
  6. PAROXETINE [Concomitant]
     Active Substance: PAROXETINE
     Route: 065

REACTIONS (2)
  - Suicide attempt [Unknown]
  - Dopamine agonist withdrawal syndrome [Unknown]
